FAERS Safety Report 6022194-7 (Version None)
Quarter: 2008Q4

REPORT INFORMATION
  Report Type: 
  Country: None (occurrence: None)
  Receive Date: 20081229
  Receipt Date: 20081219
  Transmission Date: 20090506
  Serious: Yes (Other)
  Sender: FDA-Public Use
  Company Number: JP-ALLERGAN-0816362US

PATIENT
  Sex: Female

DRUGS (1)
  1. BOTOX [Suspect]
     Indication: FACIAL SPASM
     Dosage: 12.5 UNITS, UNK
     Route: 030

REACTIONS (2)
  - EYE PAIN [None]
  - HAEMORRHAGE SUBCUTANEOUS [None]
